FAERS Safety Report 23677086 (Version 1)
Quarter: 2024Q1

REPORT INFORMATION
  Report Type: Report from Study
  Country: GB (occurrence: GB)
  Receive Date: 20240327
  Receipt Date: 20240327
  Transmission Date: 20240409
  Serious: Yes (Hospitalization)
  Sender: FDA-Public Use
  Company Number: GB-ABBVIE-5691737

PATIENT
  Age: 57 Year
  Sex: Female
  Weight: 57 kg

DRUGS (6)
  1. UPADACITINIB [Suspect]
     Active Substance: UPADACITINIB
     Indication: Colitis ulcerative
     Route: 048
  2. MESALAMINE [Concomitant]
     Active Substance: MESALAMINE
     Indication: Condition aggravated
     Route: 048
     Dates: start: 20240320, end: 20240321
  3. HYDROCORTISONE SODIUM SUCCINATE [Concomitant]
     Active Substance: HYDROCORTISONE SODIUM SUCCINATE
     Indication: Condition aggravated
     Route: 042
     Dates: start: 20240320, end: 20240321
  4. SODIUM CHLORIDE [Concomitant]
     Active Substance: SODIUM CHLORIDE
     Indication: Condition aggravated
     Dosage: ONCE
     Route: 042
     Dates: start: 20240320, end: 20240320
  5. LANSOPRAZOLE [Concomitant]
     Active Substance: LANSOPRAZOLE
     Indication: Condition aggravated
     Dosage: ONCE
     Route: 048
     Dates: start: 20240321, end: 20240321
  6. MEBEVERINE [Concomitant]
     Active Substance: MEBEVERINE
     Indication: Condition aggravated
     Route: 048
     Dates: start: 20240321, end: 20240321

REACTIONS (1)
  - Inflammatory bowel disease [Recovered/Resolved]

NARRATIVE: CASE EVENT DATE: 20240321
